FAERS Safety Report 19856903 (Version 2)
Quarter: 2021Q4

REPORT INFORMATION
  Report Type: Report from Study
  Country: ES (occurrence: ES)
  Receive Date: 20210920
  Receipt Date: 20211209
  Transmission Date: 20220303
  Serious: Yes (Hospitalization)
  Sender: FDA-Public Use
  Company Number: ES-SAMSUNG BIOEPIS-SB-2021-22200

PATIENT
  Age: 76 Year
  Sex: Male

DRUGS (2)
  1. ETANERCEPT [Suspect]
     Active Substance: ETANERCEPT
     Indication: Spondyloarthropathy
     Route: 058
     Dates: start: 20200629, end: 20210621
  2. SULFASALAZINE DELAYED-RELEASE [Concomitant]
     Active Substance: SULFASALAZINE
     Indication: Product used for unknown indication
     Dosage: UNKNOWN
     Route: 065

REACTIONS (2)
  - Pneumonia [Recovered/Resolved]
  - Product use in unapproved indication [Unknown]

NARRATIVE: CASE EVENT DATE: 20210621
